FAERS Safety Report 10703693 (Version 1)
Quarter: 2015Q1

REPORT INFORMATION
  Report Type: Spontaneous
  Country: AU (occurrence: None)
  Receive Date: 20150108
  Receipt Date: 20150108
  Transmission Date: 20150721
  Serious: Yes (Other)
  Sender: FDA-Public Use
  Company Number: AU-2014VAL000694

PATIENT
  Age: 60 Year
  Sex: Female

DRUGS (6)
  1. PRAVASTATIN [Concomitant]
     Active Substance: PRAVASTATIN\PRAVASTATIN SODIUM
  2. WARFARIN (WARFARIN) [Concomitant]
     Active Substance: WARFARIN
  3. DRONEDARONE (DRONEDARONE) (UNKNOWN) (DRONEDARONE) [Suspect]
     Active Substance: DRONEDARONE
     Indication: PRODUCT USED FOR UNKNOWN INDICATION
  4. ASPIRIN. [Concomitant]
     Active Substance: ASPIRIN
  5. METOPROLOL TARTRATE (METOPROLOL TARTRATE) (METOPROLOL TARTRATE) [Suspect]
     Active Substance: METOPROLOL TARTRATE
     Indication: PRODUCT USED FOR UNKNOWN INDICATION
  6. ENALAPRIL (ENALAPRIL) [Concomitant]
     Active Substance: ENALAPRIL

REACTIONS (6)
  - Hypertension [None]
  - Depersonalisation [None]
  - Cardiac failure [None]
  - Chronic kidney disease [None]
  - Visual impairment [None]
  - Dizziness [None]
